FAERS Safety Report 8621374-1 (Version None)
Quarter: 2012Q3

REPORT INFORMATION
  Report Type: 
  Country: None (occurrence: None)
  Receive Date: 20120824
  Receipt Date: 20120822
  Transmission Date: 20120928
  Serious: Yes (Other)
  Sender: FDA-Public Use
  Company Number: JP-PFIZER INC-2012167032

PATIENT
  Age: 67 Year
  Sex: Female
  Weight: 49 kg

DRUGS (7)
  1. LYRICA [Suspect]
     Indication: HYPOAESTHESIA
     Dosage: 25 MG, 2X/DAY
     Route: 048
     Dates: start: 20120621, end: 20120622
  2. LYRICA [Suspect]
     Dosage: 50 MG, 2X/DAY
     Route: 048
     Dates: start: 20120622, end: 20120623
  3. DEXAMETHASONE SODIUM PHOSPHATE [Concomitant]
     Indication: PREMEDICATION
     Dosage: 8.25 MG, 1X/DAY
     Route: 042
     Dates: start: 20120322
  4. LYRICA [Suspect]
     Dosage: 50 MG, 2X/DAY
     Dates: start: 20120711
  5. PACLITAXEL [Concomitant]
     Indication: METASTATIC NEOPLASM
     Dosage: 110 MG, 1X/DAY
     Route: 042
     Dates: start: 20120322
  6. ZANTAC [Concomitant]
     Indication: PREMEDICATION
     Dosage: 50 MG, 1X/DAY
     Route: 042
     Dates: start: 20120322
  7. VENA [Concomitant]
     Indication: PREMEDICATION
     Dosage: 50 MG, 1X/DAY
     Route: 048
     Dates: start: 20120322

REACTIONS (1)
  - OEDEMA PERIPHERAL [None]
